FAERS Safety Report 19174880 (Version 1)
Quarter: 2021Q2

REPORT INFORMATION
  Report Type: Spontaneous
  Country: US (occurrence: US)
  Receive Date: 20210423
  Receipt Date: 20210423
  Transmission Date: 20210717
  Serious: Yes (Other)
  Sender: FDA-Public Use
  Company Number: US-GALDERMA-US2021009250

PATIENT
  Age: 11 Month
  Sex: Male

DRUGS (10)
  1. CLOBETASOL PROPIONATE (CLOBETASOL PROPIONATE) [Suspect]
     Active Substance: CLOBETASOL PROPIONATE
     Indication: ECZEMA
     Dosage: 0.05%
     Route: 061
  2. BETAMETHASONE?DIPROPIONATE [Concomitant]
     Indication: ECZEMA
     Dosage: 0.05%
     Route: 061
  3. CEPHALEXIN. [Concomitant]
     Active Substance: CEPHALEXIN
     Indication: SUPERINFECTION
     Route: 048
  4. DESONIDE (DESONIDE) 0.05% [Suspect]
     Active Substance: DESONIDE
     Indication: ECZEMA
     Dosage: 0.05%
     Route: 061
  5. DESONIDE (DESONIDE) 0.05% [Suspect]
     Active Substance: DESONIDE
     Dosage: 0.05%
     Route: 061
  6. BETAMETHASONE VALERATE. [Concomitant]
     Active Substance: BETAMETHASONE VALERATE
     Indication: ECZEMA
     Dosage: .1%
     Route: 061
  7. MOMETASONE FUROATE. [Concomitant]
     Active Substance: MOMETASONE FUROATE
     Indication: ECZEMA
     Dosage: .1%
     Route: 061
  8. HYDROCORTISONE. [Concomitant]
     Active Substance: HYDROCORTISONE
     Indication: ECZEMA
     Dosage: 1%
     Route: 061
  9. HYDROCORTISONE. [Concomitant]
     Active Substance: HYDROCORTISONE
     Dosage: 1%
     Route: 061
  10. HYDROCORTISONE. [Concomitant]
     Active Substance: HYDROCORTISONE
     Route: 061

REACTIONS (4)
  - Cushing^s syndrome [Recovering/Resolving]
  - Blood pressure increased [Recovering/Resolving]
  - Intentional product use issue [Recovered/Resolved]
  - Growth retardation [Recovering/Resolving]
